FAERS Safety Report 4739750-6 (Version None)
Quarter: 2005Q3

REPORT INFORMATION
  Report Type: 
  Country: None (occurrence: None)
  Receive Date: 20050809
  Receipt Date: 20050809
  Transmission Date: 20060218
  Serious: No
  Sender: FDA-Public Use
  Company Number: None

PATIENT
  Age: 53 Year
  Sex: Male
  Weight: 204 kg

DRUGS (12)
  1. VANCOMYCIN [Suspect]
     Indication: CELLULITIS
     Dates: start: 20050726
  2. VANCOMYCIN [Suspect]
     Indication: STAPHYLOCOCCAL INFECTION
     Dates: start: 20050726
  3. METFORMIN [Concomitant]
  4. NEURONTIN [Concomitant]
  5. ISORDIL [Concomitant]
  6. LASIX [Concomitant]
  7. POTASSIUM CHLORIDE [Concomitant]
  8. EFFEXOR [Concomitant]
  9. PROTONIX [Concomitant]
  10. COREG [Concomitant]
  11. LEVOTHYROXINE [Concomitant]
  12. SPIRONOLACTONE [Concomitant]

REACTIONS (4)
  - RASH [None]
  - SCAB [None]
  - SKIN DISORDER [None]
  - SKIN LESION [None]
